FAERS Safety Report 14294767 (Version 1)
Quarter: 2017Q4

REPORT INFORMATION
  Report Type: Spontaneous
  Country: GB (occurrence: GB)
  Receive Date: 20171218
  Receipt Date: 20171218
  Transmission Date: 20180321
  Serious: Yes (Hospitalization)
  Sender: FDA-Public Use
  Company Number: GB-ASTRAZENECA-2017SF24534

PATIENT
  Age: 71 Year
  Sex: Female

DRUGS (5)
  1. LIPITOR [Concomitant]
     Active Substance: ATORVASTATIN CALCIUM
  2. IRESSA [Suspect]
     Active Substance: GEFITINIB
     Indication: LUNG ADENOCARCINOMA
     Route: 048
     Dates: start: 20171113, end: 20171202
  3. LISINOPRIL. [Concomitant]
     Active Substance: LISINOPRIL
  4. DIAMICRON [Concomitant]
     Active Substance: GLICLAZIDE
  5. ASPIRIN. [Concomitant]
     Active Substance: ASPIRIN

REACTIONS (6)
  - Genital ulceration [Not Recovered/Not Resolved]
  - Device related infection [Unknown]
  - Rash [Not Recovered/Not Resolved]
  - Vulvovaginal candidiasis [Unknown]
  - Vulvovaginal pain [Unknown]
  - Diarrhoea [Unknown]

NARRATIVE: CASE EVENT DATE: 20171123
